FAERS Safety Report 9681582 (Version 3)
Quarter: 2014Q1

REPORT INFORMATION
  Report Type: Spontaneous
  Country: US (occurrence: US)
  Receive Date: 20131111
  Receipt Date: 20140203
  Transmission Date: 20141002
  Serious: Yes (Death)
  Sender: FDA-Public Use
  Company Number: US-PFIZER INC-2013317732

PATIENT
  Age: 70 Year
  Sex: Male

DRUGS (1)
  1. SUTENT [Suspect]
     Indication: PHAEOCHROMOCYTOMA
     Dosage: 37.5 MG, DAILY
     Dates: start: 20120511

REACTIONS (3)
  - Sudden death [Fatal]
  - Myocardial infarction [Fatal]
  - Off label use [Unknown]
